FAERS Safety Report 22063788 (Version 1)
Quarter: 2023Q1

REPORT INFORMATION
  Report Type: Spontaneous
  Country: FR (occurrence: FR)
  Receive Date: 20230306
  Receipt Date: 20230306
  Transmission Date: 20230418
  Serious: Yes (Life-Threatening, Other)
  Sender: FDA-Public Use
  Company Number: FR-AFSSAPS-AM2023000132

PATIENT
  Age: 73 Year
  Sex: Male

DRUGS (10)
  1. AMLODIPINE [Suspect]
     Active Substance: AMLODIPINE BESYLATE
     Indication: Essential hypertension
     Dosage: 5 MILLIGRAM, ONCE A DAY
     Route: 048
     Dates: end: 20221227
  2. ATENOLOL [Suspect]
     Active Substance: ATENOLOL
     Indication: Ventricular extrasystoles
     Dosage: 50 MILLIGRAM, ONCE A DAY
     Route: 048
     Dates: end: 20221227
  3. ASPIRIN [Suspect]
     Active Substance: ASPIRIN
     Indication: Arteriosclerosis
     Dosage: 100 MILLIGRAM, ONCE A DAY
     Route: 048
     Dates: end: 20221227
  4. CLOPIDOGREL [Suspect]
     Active Substance: CLOPIDOGREL BISULFATE
     Indication: Arteriosclerosis
     Dosage: 75 MILLIGRAM, ONCE A DAY
     Route: 048
     Dates: end: 20221227
  5. HYDROCHLOROTHIAZIDE [Suspect]
     Active Substance: HYDROCHLOROTHIAZIDE
     Indication: Essential hypertension
     Dosage: UNK
     Route: 048
     Dates: end: 20221227
  6. IRBESARTAN [Suspect]
     Active Substance: IRBESARTAN
     Indication: Essential hypertension
     Dosage: UNK
     Route: 048
     Dates: end: 20221227
  7. METFORMIN [Suspect]
     Active Substance: METFORMIN HYDROCHLORIDE
     Indication: Type 2 diabetes mellitus
     Dosage: UNK
     Route: 048
     Dates: end: 20221227
  8. RILMENIDINE [Suspect]
     Active Substance: RILMENIDINE
     Indication: Essential hypertension
     Dosage: 1 MILLIGRAM, ONCE A DAY
     Route: 048
     Dates: end: 20221227
  9. PRAVASTATIN SODIUM [Concomitant]
     Active Substance: PRAVASTATIN SODIUM
     Indication: Product used for unknown indication
     Dosage: UNK
     Route: 065
  10. LATANOPROST [Concomitant]
     Active Substance: LATANOPROST
     Indication: Product used for unknown indication
     Dosage: UNK
     Route: 065

REACTIONS (2)
  - Intracranial haematoma [Recovering/Resolving]
  - Status epilepticus [Recovered/Resolved with Sequelae]

NARRATIVE: CASE EVENT DATE: 20221226
